FAERS Safety Report 21573766 (Version 1)
Quarter: 2022Q4

REPORT INFORMATION
  Report Type: Spontaneous
  Country: US (occurrence: None)
  Receive Date: 20221109
  Receipt Date: 20221109
  Transmission Date: 20230113
  Serious: Yes (Other)
  Sender: FDA-Public Use
  Company Number: None

PATIENT
  Sex: Male
  Weight: 83.25 kg

DRUGS (1)
  1. CLOTRIMAZOLE ATHLETES FOOT [Suspect]
     Active Substance: CLOTRIMAZOLE
     Indication: Tinea pedis
     Dosage: FREQUENCY : AT BEDTIME;?
     Route: 061

REACTIONS (3)
  - Application site pain [None]
  - Application site burn [None]
  - Skin exfoliation [None]
